FAERS Safety Report 9241697 (Version 3)
Quarter: 2013Q3

REPORT INFORMATION
  Report Type: Spontaneous
  Country: JP (occurrence: JP)
  Receive Date: 20130419
  Receipt Date: 20130815
  Transmission Date: 20140515
  Serious: Yes (Other)
  Sender: FDA-Public Use
  Company Number: JP-MPIJNJ-2013-02840

PATIENT
  Sex: 0

DRUGS (6)
  1. VELCADE [Suspect]
     Indication: PLASMA CELL MYELOMA
     Dosage: UNK
     Route: 042
     Dates: start: 20080908, end: 20091201
  2. DEXAMETHASONE [Concomitant]
     Indication: PLASMA CELL MYELOMA
     Dosage: UNK
     Dates: start: 20080701
  3. MELPHALAN [Concomitant]
     Indication: PLASMA CELL MYELOMA
  4. PREDNISOLONE [Concomitant]
  5. THALIDOMIDE [Concomitant]
     Indication: PLASMA CELL MYELOMA
  6. LENALIDOMIDE [Concomitant]
     Indication: PLASMA CELL MYELOMA

REACTIONS (1)
  - Hepatitis B [Not Recovered/Not Resolved]
